FAERS Safety Report 9890627 (Version 1)
Quarter: 2014Q1

REPORT INFORMATION
  Report Type: Spontaneous
  Country: KP (occurrence: None)
  Receive Date: 20140210
  Receipt Date: 20140210
  Transmission Date: 20141002
  Serious: Yes (Hospitalization, Other)
  Sender: FDA-Public Use
  Company Number: IPC201401-000064

PATIENT
  Age: 49 Year
  Sex: Male

DRUGS (8)
  1. METOCLOPRAMIDE HYDROCHLORIDE [Suspect]
     Indication: CHEMOTHERAPY
  2. IRINOTECAN [Suspect]
     Indication: CHEMOTHERAPY
     Dosage: 180 MG/ME2, INFUSED OVER 120 MINUTES
  3. FLOUROURACIL(FLUOROURACIL)(FLUOROURACI) [Concomitant]
  4. LEUCOVORIN(LEUCOVORIN)(LEUCOVORIN) [Concomitant]
  5. PALONSETRON(PALONSETRON)(PALONSETRON) [Concomitant]
  6. ATROPINE(ATROPINE)(ATROPINE) [Concomitant]
  7. OXALIPLTAIN(OXALIPLATIN)(OXALIPLATIN) [Concomitant]
  8. FLUOUROURACIL(FLUOROURACIL0(FLUORACIL) [Concomitant]

REACTIONS (1)
  - Dysarthria [None]
